FAERS Safety Report 7501258-2 (Version None)
Quarter: 2011Q2

REPORT INFORMATION
  Report Type: 
  Country: None (occurrence: None)
  Receive Date: 20110524
  Receipt Date: 20110519
  Transmission Date: 20111010
  Serious: Yes (Hospitalization)
  Sender: FDA-Public Use
  Company Number: US-ELI_LILLY_AND_COMPANY-US201006006549

PATIENT
  Sex: Male
  Weight: 90.703 kg

DRUGS (6)
  1. GLYBURIDE [Concomitant]
     Dosage: 1.25 MG, DAILY (1/D)
     Route: 048
     Dates: start: 20050101
  2. GLYBURIDE [Concomitant]
     Indication: TYPE 2 DIABETES MELLITUS
     Dosage: 2 MG, DAILY (1/D)
     Route: 048
     Dates: end: 20050101
  3. METFORMIN HCL [Concomitant]
     Indication: TYPE 2 DIABETES MELLITUS
     Dosage: 1000 MG, 2/D
     Route: 048
  4. BYETTA [Suspect]
     Dosage: 10 U, 2/D
     Route: 058
     Dates: start: 20050101
  5. BYETTA [Suspect]
     Dosage: 10 U, 2/D
     Route: 058
  6. BYETTA [Suspect]
     Indication: TYPE 2 DIABETES MELLITUS
     Dosage: 5 U, 2/D
     Route: 058
     Dates: start: 20050101, end: 20050101

REACTIONS (10)
  - VOMITING [None]
  - ARTHRALGIA [None]
  - ERUCTATION [None]
  - HYPERSOMNIA [None]
  - DRUG DOSE OMISSION [None]
  - BLOOD GLUCOSE INCREASED [None]
  - FLATULENCE [None]
  - NAUSEA [None]
  - ARTHROPATHY [None]
  - BLOOD GLUCOSE DECREASED [None]
